FAERS Safety Report 9448313 (Version 2)
Quarter: 2013Q3

REPORT INFORMATION
  Report Type: Report from Study
  Country: CA (occurrence: CA)
  Receive Date: 20130808
  Receipt Date: 20130919
  Transmission Date: 20140515
  Serious: Yes (Death, Life-Threatening, Hospitalization, Other)
  Sender: FDA-Public Use
  Company Number: CA-ASTELLAS-2012US006388

PATIENT
  Age: 55 Year
  Sex: Male
  Weight: 78 kg

DRUGS (10)
  1. TACROLIMUS MR4 CAPSULES [Suspect]
     Indication: RENAL TRANSPLANT
     Dosage: 6.5 MG, UID/QD
     Route: 048
     Dates: start: 20101210, end: 20120703
  2. TACROLIMUS MR4 CAPSULES [Suspect]
     Dosage: 13 MG, UID/QD
     Route: 048
     Dates: start: 20090830
  3. TACROLIMUS MR4 CAPSULES [Suspect]
     Dosage: 6 MG, UID/QD
     Route: 048
     Dates: start: 20120704
  4. PEMETREXED [Suspect]
     Indication: MESOTHELIOMA
     Dosage: UNK
     Route: 065
  5. CISPLATIN [Suspect]
     Indication: MESOTHELIOMA
     Dosage: UNK
     Route: 065
  6. IMURAN                             /00001501/ [Concomitant]
     Indication: RENAL TRANSPLANT
     Dosage: UNK
     Route: 048
     Dates: start: 20091006, end: 20120815
  7. PREDNISONE [Concomitant]
     Indication: RENAL TRANSPLANT
     Dosage: UNK
     Route: 048
     Dates: start: 20090830
  8. RAMIPRIL [Concomitant]
     Indication: HYPERTENSION
     Dosage: UNK
     Route: 048
     Dates: start: 20090904
  9. DIDROCAL [Concomitant]
     Indication: OSTEOPOROSIS
     Dosage: UNK
     Route: 065
     Dates: start: 201108
  10. INSULIN [Concomitant]
     Indication: DIABETES MELLITUS
     Dosage: UNK
     Route: 065
     Dates: start: 1996

REACTIONS (3)
  - Mesothelioma malignant [Fatal]
  - Pulmonary embolism [Recovered/Resolved]
  - Vomiting [Recovered/Resolved]
